FAERS Safety Report 4359127-5 (Version None)
Quarter: 2004Q2

REPORT INFORMATION
  Report Type: 
  Country: None (occurrence: None)
  Receive Date: 20040512
  Receipt Date: 20040405
  Transmission Date: 20050107
  Serious: Yes (Hospitalization)
  Sender: FDA-Public Use
  Company Number: 2004GB00806

PATIENT
  Age: 69 Year
  Sex: Male

DRUGS (6)
  1. QUETIAPINE [Suspect]
     Dosage: 300 MG DAILY PO
     Route: 048
     Dates: start: 20040225, end: 20040225
  2. AMLODIPINE [Concomitant]
  3. WARFARIN SODIUM [Concomitant]
  4. CAPTOPRIL [Concomitant]
  5. CO-DYDRAMOL [Concomitant]
  6. FENOFIBRATE [Concomitant]

REACTIONS (9)
  - ASTHENIA [None]
  - CEREBROVASCULAR ACCIDENT [None]
  - DYSARTHRIA [None]
  - HAEMOGLOBIN DECREASED [None]
  - INTERNATIONAL NORMALISED RATIO DECREASED [None]
  - MEDICATION ERROR [None]
  - MELAENA [None]
  - SOMNOLENCE [None]
  - TRANSIENT ISCHAEMIC ATTACK [None]
